FAERS Safety Report 4786942-6 (Version None)
Quarter: 2005Q3

REPORT INFORMATION
  Report Type: 
  Country: None (occurrence: None)
  Receive Date: 20050929
  Receipt Date: 20050929
  Transmission Date: 20060218
  Serious: Yes (Hospitalization)
  Sender: FDA-Public Use
  Company Number: None

PATIENT
  Sex: Male
  Weight: 97 kg

DRUGS (2)
  1. PENTOSTATIN DEOXYCOFORMYCIN, DCF) [Suspect]
     Indication: GRAFT VERSUS HOST DISEASE
     Dosage: SEE IMAGE
     Dates: start: 20050901, end: 20050916
  2. PENTOSTATIN DEOXYCOFORMYCIN, DCF) [Suspect]
     Indication: GRAFT VERSUS HOST DISEASE
     Dosage: SEE IMAGE
     Dates: start: 20050915

REACTIONS (1)
  - HAEMORRHAGE [None]
